FAERS Safety Report 4462237-5 (Version None)
Quarter: 2004Q3

REPORT INFORMATION
  Report Type: 
  Country: None (occurrence: None)
  Receive Date: 20040924
  Receipt Date: 20040915
  Transmission Date: 20050211
  Serious: Yes (Other)
  Sender: FDA-Public Use
  Company Number: 2004234040US

PATIENT
  Age: 38 Year
  Sex: Female
  Weight: 48.5 kg

DRUGS (1)
  1. XANAX [Suspect]
     Indication: ANXIETY
     Dosage: 0.25 MG, QID, ORAL
     Route: 048
     Dates: start: 19970101

REACTIONS (6)
  - AGITATION [None]
  - CHRONIC SINUSITIS [None]
  - DRUG HYPERSENSITIVITY [None]
  - POST PROCEDURAL COMPLICATION [None]
  - RHINITIS [None]
  - SCAR [None]
